FAERS Safety Report 8478615-3 (Version None)
Quarter: 2012Q2

REPORT INFORMATION
  Report Type: 
  Country: None (occurrence: None)
  Receive Date: 20120621
  Receipt Date: 20120611
  Transmission Date: 20120825
  Serious: Yes (Hospitalization)
  Sender: FDA-Public Use
  Company Number: DSA_57486_2012

PATIENT
  Sex: Male

DRUGS (3)
  1. WELLBUTRIN SR [Suspect]
     Indication: PRODUCT USED FOR UNKNOWN INDICATION
     Dosage: 300 MG, DAILY ORAL; 150 MG, DAILY ORAL; 150 MG, DAILY ORAL
     Route: 048
     Dates: start: 20120501
  2. WELLBUTRIN SR [Suspect]
     Indication: PRODUCT USED FOR UNKNOWN INDICATION
     Dosage: 300 MG, DAILY ORAL; 150 MG, DAILY ORAL; 150 MG, DAILY ORAL
     Route: 048
     Dates: start: 20110818, end: 20120120
  3. WELLBUTRIN SR [Suspect]
     Indication: PRODUCT USED FOR UNKNOWN INDICATION
     Dosage: 300 MG, DAILY ORAL; 150 MG, DAILY ORAL; 150 MG, DAILY ORAL
     Route: 048
     Dates: start: 20120101, end: 20120501

REACTIONS (3)
  - HYPERTENSION [None]
  - HEMIPLEGIA [None]
  - TRANSIENT ISCHAEMIC ATTACK [None]
